FAERS Safety Report 15772513 (Version 4)
Quarter: 2019Q1

REPORT INFORMATION
  Report Type: Report from Study
  Country: AR (occurrence: AR)
  Receive Date: 20181228
  Receipt Date: 20190306
  Transmission Date: 20190417
  Serious: Yes (Hospitalization, Other)
  Sender: FDA-Public Use
  Company Number: AR-TAKEDA-2018TUS035906

PATIENT
  Age: 33 Year
  Sex: Male
  Weight: 86.2 kg

DRUGS (3)
  1. PONATINIB [Suspect]
     Active Substance: PONATINIB
     Dosage: UNK
     Route: 065
     Dates: start: 20181218, end: 20181226
  2. PONATINIB [Suspect]
     Active Substance: PONATINIB
     Indication: CHRONIC MYELOID LEUKAEMIA
     Dosage: 30 MILLIGRAM
     Route: 065
     Dates: start: 20181213
  3. DICLOFENAC [Concomitant]
     Active Substance: DICLOFENAC
     Indication: LIMB INJURY
     Dosage: UNK
     Route: 048
     Dates: start: 20181205

REACTIONS (2)
  - Seizure [Recovered/Resolved]
  - Headache [Recovered/Resolved]

NARRATIVE: CASE EVENT DATE: 20181216
